FAERS Safety Report 10180458 (Version 1)
Quarter: 2014Q2

REPORT INFORMATION
  Report Type: Spontaneous
  Country: US (occurrence: US)
  Receive Date: 20140519
  Receipt Date: 20140519
  Transmission Date: 20141212
  Serious: No
  Sender: FDA-Public Use
  Company Number: US-AMGEN INC.-USASP2013091184

PATIENT
  Sex: Female

DRUGS (3)
  1. PROLIA [Suspect]
     Indication: OSTEOPOROSIS POSTMENOPAUSAL
     Route: 065
  2. ALEVE [Concomitant]
     Dosage: SINCE 10 YEARS
  3. ALEVE [Concomitant]
     Indication: BACK PAIN

REACTIONS (1)
  - Back pain [Unknown]
